FAERS Safety Report 11030678 (Version 1)
Quarter: 2015Q2

REPORT INFORMATION
  Report Type: Spontaneous
  Country: US (occurrence: None)
  Receive Date: 20150414
  Receipt Date: 20150414
  Transmission Date: 20150821
  Serious: Yes (Other)
  Sender: FDA-Public Use
  Company Number: None

PATIENT
  Age: 14 Month
  Sex: Female
  Weight: 11.39 kg

DRUGS (2)
  1. AUGMENTIN [Suspect]
     Active Substance: AMOXICILLIN\CLAVULANATE POTASSIUM
     Indication: CONJUNCTIVITIS
     Dosage: 480 MG (4 ML), BID, ORAL
     Route: 048
     Dates: start: 20150308, end: 20150317
  2. AUGMENTIN [Suspect]
     Active Substance: AMOXICILLIN\CLAVULANATE POTASSIUM
     Indication: OTITIS MEDIA
     Dosage: 480 MG (4 ML), BID, ORAL
     Route: 048
     Dates: start: 20150308, end: 20150317

REACTIONS (3)
  - Urticaria [None]
  - Rash [None]
  - Contusion [None]

NARRATIVE: CASE EVENT DATE: 20150317
